FAERS Safety Report 16259299 (Version 1)
Quarter: 2019Q2

REPORT INFORMATION
  Report Type: Report from Study
  Country: AT (occurrence: AT)
  Receive Date: 20190501
  Receipt Date: 20190501
  Transmission Date: 20190711
  Serious: Yes (Hospitalization)
  Sender: FDA-Public Use
  Company Number: AT-ROCHE-2307544

PATIENT

DRUGS (7)
  1. RITUXIMAB. [Suspect]
     Active Substance: RITUXIMAB
     Indication: PEMPHIGOID
     Route: 065
  2. AZATHIOPRINE. [Concomitant]
     Active Substance: AZATHIOPRINE
  3. PREDNISONE. [Concomitant]
     Active Substance: PREDNISONE
  4. DAPSONE. [Concomitant]
     Active Substance: DAPSONE
  5. MYCOPHENOLATE MOFETIL. [Concomitant]
     Active Substance: MYCOPHENOLATE MOFETIL
  6. METHOTREXATE. [Concomitant]
     Active Substance: METHOTREXATE
  7. DOXYCYCLINE. [Concomitant]
     Active Substance: DOXYCYCLINE

REACTIONS (7)
  - Mental status changes [Unknown]
  - Compression fracture [Unknown]
  - Gastrointestinal haemorrhage [Unknown]
  - Infection [Unknown]
  - Syncope [Unknown]
  - Pulmonary embolism [Unknown]
  - Deep vein thrombosis [Unknown]
